FAERS Safety Report 19122965 (Version 2)
Quarter: 2021Q2

REPORT INFORMATION
  Report Type: Spontaneous
  Country: US (occurrence: US)
  Receive Date: 20210412
  Receipt Date: 20210429
  Transmission Date: 20210717
  Serious: Yes (Life-Threatening, Hospitalization, Other)
  Sender: FDA-Public Use
  Company Number: US-009507513-2104USA001490

PATIENT
  Age: 76 Year
  Sex: Female
  Weight: 47.17 kg

DRUGS (1)
  1. KEYTRUDA [Suspect]
     Active Substance: PEMBROLIZUMAB
     Indication: VAGINAL ADENOCARCINOMA
     Dosage: UNK, EVERY 3 WEEKS
     Route: 042
     Dates: start: 201903

REACTIONS (6)
  - Cardiac disorder [Recovering/Resolving]
  - Dyspnoea [Recovering/Resolving]
  - Product use in unapproved indication [Unknown]
  - Pruritus allergic [Recovering/Resolving]
  - Heart rate decreased [Recovering/Resolving]
  - Malaise [Recovering/Resolving]

NARRATIVE: CASE EVENT DATE: 20210331
